FAERS Safety Report 9010059 (Version 1)
Quarter: 2013Q1

REPORT INFORMATION
  Report Type: Spontaneous
  Country: DE (occurrence: DE)
  Receive Date: 20130110
  Receipt Date: 20130110
  Transmission Date: 20140127
  Serious: Yes (Death, Other)
  Sender: FDA-Public Use
  Company Number: PHHY2012DE103619

PATIENT
  Sex: Female

DRUGS (1)
  1. TASIGNA [Suspect]
     Indication: LEUKAEMIA
     Route: 048

REACTIONS (3)
  - Leukaemia [Fatal]
  - Malignant neoplasm progression [Fatal]
  - Ileus [Unknown]
